FAERS Safety Report 21704359 (Version 1)
Quarter: 2022Q4

REPORT INFORMATION
  Report Type: Spontaneous
  Country: CA (occurrence: CA)
  Receive Date: 20221209
  Receipt Date: 20221209
  Transmission Date: 20230113
  Serious: Yes (Hospitalization)
  Sender: FDA-Public Use
  Company Number: CA-TEVA-2022-CA-2057411

PATIENT
  Age: 75 Year
  Sex: Male

DRUGS (11)
  1. BICALUTAMIDE [Suspect]
     Active Substance: BICALUTAMIDE
     Indication: Prostate cancer
     Dosage: FREQUENCY TIME : EVERY 1 DAYS ; THERAPY DURATION : 1.0 MONTHS
     Route: 065
  2. BICALUTAMIDE [Suspect]
     Active Substance: BICALUTAMIDE
     Dosage: 50 MILLIGRAM DAILY; THERAPY DURATION : 1.0 MONTHS
     Route: 065
  3. ERLEADA [Suspect]
     Active Substance: APALUTAMIDE
     Indication: Prostate cancer
     Dosage: FREQUENCY TIME : EVERY 1 DAYS ; THERAPY DURATION : 127.0 DAYS
     Route: 048
  4. ERLEADA [Suspect]
     Active Substance: APALUTAMIDE
     Dosage: FREQUENCY TIME : EVERY 1 DAYS ; THERAPY DURATION : 127.0 DAYS
     Route: 048
  5. ERLEADA [Suspect]
     Active Substance: APALUTAMIDE
     Dosage: 180 MILLIGRAM DAILY;  THERAPY DURATION : 127.0 DAYS
     Route: 048
  6. ERLEADA [Suspect]
     Active Substance: APALUTAMIDE
     Dosage: 240 MILLIGRAM DAILY; THERAPY DURATION : 127.0 DAYS
     Route: 048
  7. LEUPROLIDE ACETATE [Suspect]
     Active Substance: LEUPROLIDE ACETATE
     Indication: Prostate cancer
     Route: 065
  8. ELIGARD [Suspect]
     Active Substance: LEUPROLIDE ACETATE
     Indication: Prostate cancer
     Route: 065
  9. ASPIRIN [Concomitant]
     Active Substance: ASPIRIN
     Indication: Product used for unknown indication
     Route: 065
  10. CALCIUM\CHOLECALCIFEROL [Concomitant]
     Active Substance: CALCIUM\CHOLECALCIFEROL
     Indication: Product used for unknown indication
     Route: 065
  11. ERGOCALCIFEROL [Concomitant]
     Active Substance: ERGOCALCIFEROL
     Indication: Product used for unknown indication
     Route: 065

REACTIONS (1)
  - Syncope [Recovered/Resolved with Sequelae]
